FAERS Safety Report 5519937-5 (Version None)
Quarter: 2007Q4

REPORT INFORMATION
  Report Type: 
  Country: None (occurrence: None)
  Receive Date: 20071116
  Receipt Date: 20071108
  Transmission Date: 20080405
  Serious: Yes (Other)
  Sender: FDA-Public Use
  Company Number: CH-ASTRAZENECA-2007PK02349

PATIENT
  Age: 42 Year
  Sex: Female

DRUGS (3)
  1. SEROQUEL [Suspect]
     Dates: end: 20060609
  2. TRITTICO [Suspect]
     Route: 048
     Dates: end: 20060609
  3. XANAX [Suspect]
     Route: 048
     Dates: end: 20060609

REACTIONS (2)
  - DRUG EXPOSURE DURING PREGNANCY [None]
  - GESTATIONAL DIABETES [None]
